FAERS Safety Report 9906391 (Version 2)
Quarter: 2014Q1

REPORT INFORMATION
  Report Type: Spontaneous
  Country: US (occurrence: US)
  Receive Date: 20140218
  Receipt Date: 20140218
  Transmission Date: 20141002
  Serious: No
  Sender: FDA-Public Use
  Company Number: US-GILEAD-2012-0051845

PATIENT
  Sex: Female
  Weight: 54.42 kg

DRUGS (2)
  1. LETAIRIS [Suspect]
     Indication: PULMONARY HYPERTENSION
     Dosage: 5 MG, UNK
     Route: 048
     Dates: start: 20111121
  2. ADCIRCA [Concomitant]

REACTIONS (5)
  - Bronchitis [Unknown]
  - Chronic obstructive pulmonary disease [Unknown]
  - Polyp [Unknown]
  - Dyspnoea [Unknown]
  - Anaemia [Unknown]
